FAERS Safety Report 8788121 (Version 1)
Quarter: 2012Q4

REPORT INFORMATION
  Report Type: 
  Country: US (occurrence: US)
  Receive Date: 20120914
  Receipt Date: 20120914
  Transmission Date: 20130627
  Serious: Yes (Hospitalization)
  Sender: FDA-Public Use
  Company Number: US-ASTELLAS-2012US007825

PATIENT
  Sex: Male
  Weight: 104 kg

DRUGS (93)
  1. AMBISOME [Suspect]
     Indication: FUNGAL INFECTION
     Dosage: 350 mg, UID/QD
     Route: 042
     Dates: start: 20120802, end: 20120819
  2. PROGRAF [Suspect]
     Indication: GRAFT VERSUS HOST DISEASE
     Dosage: 2.5 mg, UID/QD
     Route: 042
     Dates: start: 20120808, end: 20120812
  3. PROGRAF [Suspect]
     Dosage: 2 mg, UID/QD
     Route: 042
     Dates: start: 20120812, end: 20120820
  4. PROGRAF [Suspect]
     Dosage: 1 mg, UID/QD
     Route: 042
     Dates: start: 20120821
  5. MYCAMINE [Concomitant]
     Indication: FUNGAL INFECTION
     Dosage: 150 mg, UID/QD
     Route: 042
     Dates: start: 20120722, end: 20120821
  6. LASIX                              /00032601/ [Concomitant]
     Indication: POLYURIA
     Dosage: UNK
     Route: 065
     Dates: end: 20120905
  7. MERREM [Concomitant]
     Indication: BACTERAEMIA
     Dosage: 2 g, bid
     Route: 042
     Dates: start: 20120820
  8. MERREM [Concomitant]
     Dosage: 2 g, UID/QD
  9. VANCOMYCIN [Concomitant]
     Indication: BACTERAEMIA
     Dosage: 1 g, bid
     Route: 042
     Dates: start: 20120808, end: 20120812
  10. VANCOMYCIN [Concomitant]
     Dosage: 1.25 g, bid
     Route: 042
     Dates: start: 20120808, end: 20120808
  11. VANCOMYCIN [Concomitant]
     Dosage: 1.25 g, UID/QD
     Route: 042
     Dates: start: 20120812, end: 20120820
  12. DILTIAZEM [Concomitant]
     Indication: ATRIAL FIBRILLATION
     Dosage: UNK
     Route: 042
  13. DILTIAZEM [Concomitant]
     Dosage: UNK
     Route: 048
  14. DILTIAZEM ER [Concomitant]
     Indication: ATRIAL FIBRILLATION
     Dosage: 480 mg, UID/QD
     Route: 048
  15. METOPROLOL [Concomitant]
     Indication: PRODUCT USED FOR UNKNOWN INDICATION
     Dosage: 75 mg, bid
     Route: 048
     Dates: end: 20120905
  16. ULORIC [Concomitant]
     Indication: GOUT
     Dosage: 40 mg, qod
     Route: 048
     Dates: start: 20120723
  17. ULORIC [Concomitant]
     Indication: PROPHYLAXIS
  18. IPRATROPIUM [Concomitant]
     Indication: PRODUCT USED FOR UNKNOWN INDICATION
     Dosage: 500 ug, Q4H
     Route: 055
  19. METOCLOPRAMIDE HCL [Concomitant]
     Indication: PRODUCT USED FOR UNKNOWN INDICATION
     Dosage: 5 mg, AC + HS
     Route: 048
  20. ZOFRAN                             /00955301/ [Concomitant]
     Indication: PROPHYLAXIS
     Dosage: 16 mg, UID/QD
     Route: 048
     Dates: start: 20120803, end: 20120813
  21. ZOFRAN                             /00955301/ [Concomitant]
     Indication: NAUSEA
     Dosage: 8 mg, Q12 hours
     Route: 048
     Dates: start: 20120814
  22. OXYBUTYNIN [Concomitant]
     Indication: BLADDER SPASM
     Dosage: 5 mg, Q6 hours
     Route: 048
  23. OXYCODONE [Concomitant]
     Indication: PRODUCT USED FOR UNKNOWN INDICATION
     Dosage: 10 mg, bid
     Route: 048
  24. PHYTONADIONE [Concomitant]
     Indication: PRODUCT USED FOR UNKNOWN INDICATION
     Dosage: 10 mg, Weekly
     Route: 058
  25. POTASSIUM CHLORIDE [Concomitant]
     Indication: PRODUCT USED FOR UNKNOWN INDICATION
     Dosage: 20 mEq, tid
     Route: 048
  26. POTASSIUM CHLORIDE [Concomitant]
     Dosage: 20 mEq, prn
     Route: 042
     Dates: start: 20120722
  27. TRAMADOL [Concomitant]
     Indication: PRODUCT USED FOR UNKNOWN INDICATION
     Dosage: 50 mg, Q6 hours
     Route: 048
  28. ACETAMINOPHEN [Concomitant]
     Indication: PRODUCT USED FOR UNKNOWN INDICATION
     Dosage: 650 mg, prn
     Route: 048
  29. ALUMINIUM W/MAGNESIUM HYDROXIDE/SIMETICONE [Concomitant]
     Indication: PRODUCT USED FOR UNKNOWN INDICATION
     Dosage: 30 ml, prn
     Route: 048
  30. CODEINE W/GUAIFENESIN              /00693301/ [Concomitant]
     Indication: PRODUCT USED FOR UNKNOWN INDICATION
     Dosage: 10 ml, prn
     Route: 048
  31. DIPHENHYDRAMINE [Concomitant]
     Indication: PRODUCT USED FOR UNKNOWN INDICATION
     Dosage: 25 mg, prn
     Route: 048
  32. DOCUSATE [Concomitant]
     Indication: PRODUCT USED FOR UNKNOWN INDICATION
     Dosage: 100 mg, prn
     Route: 048
  33. HEPARIN [Concomitant]
     Indication: PRODUCT USED FOR UNKNOWN INDICATION
     Dosage: 60 U, prn
     Route: 042
  34. HYDROMORPHONE [Concomitant]
     Indication: PRODUCT USED FOR UNKNOWN INDICATION
     Dosage: 0.5 mg, prn
     Route: 042
  35. HYDROMORPHONE [Concomitant]
     Dosage: 1 mg, prn
     Route: 042
  36. LIDOCAINE [Concomitant]
     Indication: PRODUCT USED FOR UNKNOWN INDICATION
     Dosage: 5 ml, prn
     Route: 042
  37. IMODIUM [Concomitant]
     Indication: DIARRHOEA
     Dosage: 2 mg, prn
     Route: 048
  38. ATIVAN [Concomitant]
     Indication: PROPHYLAXIS
     Dosage: 1 mg, Total Dose
     Route: 042
     Dates: start: 20120810, end: 20120810
  39. ATIVAN [Concomitant]
     Indication: ANXIETY
     Dosage: 0.5 mg, prn
     Route: 042
  40. ATIVAN [Concomitant]
     Dosage: 0.5 mg, prn
     Route: 048
  41. COMPAZINE                          /00013302/ [Concomitant]
     Indication: PRODUCT USED FOR UNKNOWN INDICATION
     Dosage: 10 mg, prn
     Route: 048
  42. TYLENOL /00020001/ [Concomitant]
     Indication: TRANSFUSION
     Dosage: UNK
     Route: 048
  43. ACYCLOVIR                          /00587301/ [Concomitant]
     Indication: HERPES SIMPLEX
     Dosage: 400 mg, tid
     Route: 048
     Dates: start: 20120803
  44. ACYCLOVIR                          /00587301/ [Concomitant]
     Dosage: 400 mg, UID/QD
     Route: 048
     Dates: start: 20120803
  45. ACYCLOVIR                          /00587301/ [Concomitant]
     Dosage: 400 mg, bid
     Route: 048
  46. AMICAR [Concomitant]
     Indication: EPISTAXIS
     Dosage: 50 mg, UID/QD
     Route: 048
     Dates: start: 20120801
  47. NORVASC [Concomitant]
     Indication: HYPERTENSION
     Dosage: 2.5 mg, UID/QD
     Route: 048
     Dates: start: 20120810, end: 20120821
  48. NORVASC [Concomitant]
     Dosage: 10 mg, UID/QD
     Route: 048
  49. EMEND                              /01627301/ [Concomitant]
     Indication: PROPHYLAXIS
     Dosage: 125 mg, Total Dose
     Route: 048
     Dates: start: 20120808, end: 20120808
  50. EMEND                              /01627301/ [Concomitant]
     Dosage: 80 mg, UID/QD
     Route: 048
     Dates: start: 20120809, end: 20120810
  51. BACITRACIN [Concomitant]
     Indication: EPISTAXIS
     Dosage: UNK
     Route: 061
     Dates: start: 20120728, end: 20120809
  52. POLYSPORIN                         /00130201/ [Concomitant]
     Indication: EPISTAXIS
     Dosage: UNK
     Route: 061
     Dates: start: 20120722
  53. CALCIUM GLUCONATE [Concomitant]
     Indication: HYPERCALCAEMIA
     Dosage: 1 g, prn
     Route: 042
     Dates: start: 20120817, end: 20120818
  54. CEFEPIME [Concomitant]
     Indication: BACTERIAL INFECTION
     Dosage: 2 g, tid
     Route: 042
     Dates: start: 20120722, end: 20120820
  55. CHLORHEXIDINE HYDROCHLORIDE [Concomitant]
     Indication: STOMATITIS
     Dosage: 10 ml, qid
     Dates: start: 20120803
  56. THORAZINE                          /00011901/ [Concomitant]
     Indication: ANXIETY
     Dosage: 25 mg, UID/QD
     Route: 048
     Dates: start: 20120809, end: 20120809
  57. DEXAMETHASONE [Concomitant]
     Indication: PROPHYLAXIS
     Dosage: 12 mg, Total Dose
     Route: 042
     Dates: start: 20120808, end: 20120808
  58. DEXAMETHASONE [Concomitant]
     Dosage: 12 mg, Total Dose
     Route: 042
     Dates: start: 20120809, end: 20120810
  59. BENADRYL                           /00000402/ [Concomitant]
     Indication: PROPHYLAXIS
     Dosage: 50 mg, Total Dose
     Route: 042
     Dates: start: 20120810, end: 20120810
  60. VASOTEC                            /00574902/ [Concomitant]
     Indication: HYPERTENSION
     Dosage: 10 mg, bid
     Route: 048
     Dates: start: 20120805, end: 20120821
  61. VASOTEC                            /00574902/ [Concomitant]
     Dosage: 2.5 mg, UID/QD
     Route: 048
  62. NEXIUM                             /01479302/ [Concomitant]
     Indication: PROPHYLAXIS AGAINST GASTROINTESTINAL ULCER
     Dosage: 40 mg, UID/QD
     Route: 048
     Dates: start: 20120804
  63. NEUPOGEN [Concomitant]
     Indication: NEUTROPENIA
     Dosage: 480 mg, UID/QD
     Route: 058
     Dates: start: 20120811, end: 20120823
  64. FLUDARABINE [Concomitant]
     Indication: STEM CELL TRANSPLANT
     Dosage: 70 mg, UID/QD
     Route: 042
     Dates: start: 20120803, end: 20120807
  65. HYDROCORTISONE [Concomitant]
     Indication: PROPHYLAXIS
     Dosage: 100 mg, Total Dose
     Route: 042
     Dates: start: 20120810, end: 20120810
  66. MAGNESIUM SULFATE [Concomitant]
     Indication: HYPOMAGNESAEMIA
     Dosage: 2 g, prn
     Route: 042
     Dates: start: 20120813
  67. MELPHALAN [Concomitant]
     Indication: STEM CELL TRANSPLANT
     Dosage: 335 mg, Total Dose
     Route: 042
     Dates: start: 20120809, end: 20120809
  68. FLAGYL /00012501/ [Concomitant]
     Indication: FEBRILE NEUTROPENIA
     Dosage: 500 mg, tid
     Route: 042
     Dates: start: 20120722, end: 20120817
  69. FLAGYL /00012501/ [Concomitant]
     Dosage: 500 mg tab, tid
     Route: 048
     Dates: start: 20120817, end: 20120820
  70. MEPHYTON [Concomitant]
     Indication: SUPPLEMENTATION THERAPY
     Dosage: 10 mg, Weekly
     Route: 058
     Dates: start: 20120806
  71. K-DUR [Concomitant]
     Indication: HYPOKALAEMIA
     Dosage: 20 mEq, UID/QD
     Route: 048
     Dates: start: 20120722
  72. K-DUR [Concomitant]
     Dosage: 20 mEq, prn
     Route: 048
     Dates: start: 20120722
  73. K-LOR [Concomitant]
     Indication: HYPOKALAEMIA
     Dosage: 20 mEq, prn
     Route: 048
     Dates: start: 20120724
  74. K-LOR [Concomitant]
     Dosage: 80 mEq, prn
     Route: 048
     Dates: start: 20120724
  75. OCEAN NASAL [Concomitant]
     Indication: EPISTAXIS
     Dosage: 1-2 sprays prn
     Route: 045
     Dates: start: 20120727
  76. ALDACTONE                          /00006201/ [Concomitant]
     Indication: OEDEMA PERIPHERAL
     Dosage: 25 mg, bid
     Route: 048
     Dates: start: 20120807, end: 20120817
  77. ALDACTONE                          /00006201/ [Concomitant]
     Dosage: 50 mg, bid
     Route: 048
     Dates: start: 20120807
  78. BACTRIM [Concomitant]
     Indication: PROPHYLAXIS
     Dosage: 1 DF, UID/QD
     Route: 048
     Dates: start: 20120803, end: 20120809
  79. REGLAN                             /00041901/ [Concomitant]
     Indication: PRODUCT USED FOR UNKNOWN INDICATION
     Dosage: UNK
     Route: 065
  80. MIRALAX                            /00754501/ [Concomitant]
     Indication: PROPHYLAXIS
     Dosage: UNK
     Route: 065
  81. PERI-COLACE [Concomitant]
     Indication: PROPHYLAXIS
     Dosage: UNK
     Route: 065
  82. LACTULOSE [Concomitant]
     Indication: PROPHYLAXIS
     Dosage: UNK
     Route: 065
  83. ENALAPRIL [Concomitant]
     Indication: PRODUCT USED FOR UNKNOWN INDICATION
     Dosage: 2.5 mg, Unknown/D
     Route: 065
  84. AMLODIPINE [Concomitant]
     Indication: PRODUCT USED FOR UNKNOWN INDICATION
     Dosage: 10 mg, Unknown/D
     Route: 065
  85. HYDROCHLOROTHIAZIDE [Concomitant]
     Indication: PRODUCT USED FOR UNKNOWN INDICATION
     Dosage: 15 mg, Unknown/D
     Route: 065
  86. HYDROCHLOROTHIAZIDE [Concomitant]
     Dosage: 25 mg, UID/QD
     Route: 048
  87. VITAMIN D3 [Concomitant]
     Indication: PRODUCT USED FOR UNKNOWN INDICATION
     Dosage: 1000 U, UID/QD
     Route: 048
  88. CIPRO                              /00697201/ [Concomitant]
     Indication: PRODUCT USED FOR UNKNOWN INDICATION
     Dosage: 750 mg, bid
     Route: 048
  89. FISH OIL [Concomitant]
     Indication: PRODUCT USED FOR UNKNOWN INDICATION
     Dosage: UNK
     Route: 048
  90. PEPCID                             /00706001/ [Concomitant]
     Indication: PRODUCT USED FOR UNKNOWN INDICATION
     Dosage: 20 mg, UNK
     Route: 048
  91. DIFLUCAN [Concomitant]
     Indication: PRODUCT USED FOR UNKNOWN INDICATION
     Dosage: 200 mg, UID/QD
     Route: 048
  92. HEXAVITAMIN                        /00067501/ [Concomitant]
     Indication: PRODUCT USED FOR UNKNOWN INDICATION
     Dosage: 1 DF, UID/QD
     Route: 048
  93. PSYLLIUM                           /01328801/ [Concomitant]
     Indication: PRODUCT USED FOR UNKNOWN INDICATION
     Dosage: UNK
     Route: 048

REACTIONS (3)
  - Off label use [Unknown]
  - Renal tubular necrosis [Unknown]
  - Renal failure acute [Unknown]
